FAERS Safety Report 10024187 (Version 1)
Quarter: 2014Q1

REPORT INFORMATION
  Report Type: Spontaneous
  Country: US (occurrence: US)
  Receive Date: 20140320
  Receipt Date: 20140320
  Transmission Date: 20141002
  Serious: No
  Sender: FDA-Public Use
  Company Number: US-PFIZER INC-2014078493

PATIENT
  Age: 62 Year
  Sex: Male
  Weight: 73 kg

DRUGS (5)
  1. CHANTIX [Suspect]
     Indication: SMOKING CESSATION THERAPY
     Dosage: 0.5 MG, 1X/DAY
     Route: 048
     Dates: start: 201312, end: 201312
  2. LISINOPRIL [Concomitant]
     Dosage: 20 MG, UNK
  3. ATENOLOL [Concomitant]
     Dosage: 0.5 MG, UNK
  4. DIGOXIN [Concomitant]
     Dosage: 0.25 MG, UNK
  5. ADVAIR [Concomitant]
     Dosage: UNK

REACTIONS (3)
  - Nasopharyngitis [Unknown]
  - Throat tightness [Unknown]
  - Dysphagia [Unknown]
